FAERS Safety Report 7289120-4 (Version None)
Quarter: 2011Q1

REPORT INFORMATION
  Report Type: 
  Country: None (occurrence: None)
  Receive Date: 20110211
  Receipt Date: 20110208
  Transmission Date: 20110831
  Serious: Yes (Other)
  Sender: FDA-Public Use
  Company Number: US-AMGEN-USASP2011005472

PATIENT
  Age: 62 Year
  Sex: Male

DRUGS (4)
  1. IMMUNOGLOBULINS [Concomitant]
     Dosage: UNK
     Dates: start: 20090717
  2. NPLATE [Suspect]
     Indication: IDIOPATHIC THROMBOCYTOPENIC PURPURA
     Dosage: 450 A?G, UNK
     Dates: start: 20100505, end: 20101203
  3. RITUXIMAB [Concomitant]
     Dosage: UNK
     Dates: start: 20060613
  4. NPLATE [Suspect]
     Dates: start: 20100430, end: 20101203

REACTIONS (2)
  - DRUG INEFFECTIVE [None]
  - THERAPEUTIC RESPONSE DECREASED [None]
